FAERS Safety Report 13586020 (Version 1)
Quarter: 2017Q2

REPORT INFORMATION
  Report Type: Spontaneous
  Country: US (occurrence: US)
  Receive Date: 20170526
  Receipt Date: 20170526
  Transmission Date: 20170830
  Serious: Yes (Other)
  Sender: FDA-Public Use
  Company Number: None

PATIENT
  Age: 34 Year
  Sex: Male
  Weight: 76.59 kg

DRUGS (1)
  1. BUPRENORPHINE HCL/NALOXONE [Suspect]
     Active Substance: BUPRENORPHINE HYDROCHLORIDE\NALOXONE
     Indication: DRUG USE DISORDER
     Dosage: 8-2MG BID SL
     Route: 060
     Dates: start: 20170418

REACTIONS (1)
  - Nausea [None]

NARRATIVE: CASE EVENT DATE: 20170517
